FAERS Safety Report 6390232-8 (Version None)
Quarter: 2009Q4

REPORT INFORMATION
  Report Type: 
  Country: None (occurrence: None)
  Receive Date: 20091006
  Receipt Date: 20090930
  Transmission Date: 20100525
  Serious: Yes (Hospitalization)
  Sender: FDA-Public Use
  Company Number: B0564535A

PATIENT
  Sex: Female

DRUGS (1)
  1. LAMICTAL [Suspect]
     Indication: BIPOLAR I DISORDER
     Route: 048
     Dates: start: 20080528, end: 20090416

REACTIONS (4)
  - FEELING ABNORMAL [None]
  - HEADACHE [None]
  - MANIA [None]
  - SICK SINUS SYNDROME [None]
